FAERS Safety Report 6692835-X (Version None)
Quarter: 2010Q2

REPORT INFORMATION
  Report Type: 
  Country: None (occurrence: None)
  Receive Date: 20100419
  Receipt Date: 20100330
  Transmission Date: 20101027
  Serious: Yes (Hospitalization)
  Sender: FDA-Public Use
  Company Number: 2010001041

PATIENT
  Age: 77 Year
  Sex: Female

DRUGS (7)
  1. ERLOTINIB HYDROCHLORIDE [Suspect]
     Indication: NON-SMALL CELL LUNG CANCER
     Dosage: (150 MG,QD), ORAL
     Route: 048
     Dates: start: 20100128, end: 20100304
  2. PIOGLITAZONE HCL [Concomitant]
  3. ALPRAZOLAM [Concomitant]
  4. INSULIN (INSULIN) [Concomitant]
  5. ACIPHEX [Concomitant]
  6. TIMOLOL MALEATE [Concomitant]
  7. METOPROLOL (METOPROLOL) [Concomitant]

REACTIONS (6)
  - CARDIOMEGALY [None]
  - DECREASED APPETITE [None]
  - DIARRHOEA [None]
  - PLEURAL EFFUSION [None]
  - PULMONARY EMBOLISM [None]
  - SPEECH DISORDER [None]
